FAERS Safety Report 13381620 (Version 3)
Quarter: 2018Q2

REPORT INFORMATION
  Report Type: Report from Study
  Country: ES (occurrence: ES)
  Receive Date: 20170329
  Receipt Date: 20180416
  Transmission Date: 20180711
  Serious: Yes (Life-Threatening)
  Sender: FDA-Public Use
  Company Number: ES-ROCHE-1912251

PATIENT
  Age: 58 Year
  Sex: Male

DRUGS (4)
  1. RIBAVIRIN. [Interacting]
     Active Substance: RIBAVIRIN
     Route: 065
  2. SOFOSBUVIR [Interacting]
     Active Substance: SOFOSBUVIR
     Indication: HEPATITIS C
     Route: 065
  3. RIBAVIRIN. [Suspect]
     Active Substance: RIBAVIRIN
     Indication: HEPATITIS C
     Route: 065
  4. SIMEPREVIR [Interacting]
     Active Substance: SIMEPREVIR
     Indication: HEPATITIS C
     Route: 065

REACTIONS (7)
  - Agranulocytosis [Recovered/Resolved]
  - Bone marrow failure [Unknown]
  - Febrile neutropenia [Recovered/Resolved]
  - Drug interaction [Unknown]
  - Pancytopenia [Recovered/Resolved]
  - Herpes virus infection [Unknown]
  - Haemolytic anaemia [Recovered/Resolved]
